FAERS Safety Report 7091263-5 (Version None)
Quarter: 2010Q4

REPORT INFORMATION
  Report Type: 
  Country: None (occurrence: None)
  Receive Date: 20101109
  Receipt Date: 20101102
  Transmission Date: 20110411
  Serious: Yes (Other)
  Sender: FDA-Public Use
  Company Number: US-ABBOTT-10P-163-0675849-00

PATIENT
  Sex: Female
  Weight: 71.278 kg

DRUGS (7)
  1. HUMIRA [Suspect]
     Indication: CROHN'S DISEASE
     Dates: start: 20091111
  2. UNKNOWN ORAL IRON SUPPLIMENT [Concomitant]
     Indication: PRODUCT USED FOR UNKNOWN INDICATION
     Route: 048
  3. PREDNISONE [Concomitant]
     Indication: CROHN'S DISEASE
  4. LEVOTHYROXINE [Concomitant]
     Indication: HYPOTHYROIDISM
  5. XYGAL [Concomitant]
     Indication: HYPERSENSITIVITY
  6. ALIN [Concomitant]
     Indication: HYPERSENSITIVITY
     Route: 045
  7. ZANTAC [Concomitant]
     Indication: HYPERSENSITIVITY

REACTIONS (11)
  - ANAEMIA [None]
  - CATARACT [None]
  - DIZZINESS [None]
  - FATIGUE [None]
  - LARGE INTESTINAL HAEMORRHAGE [None]
  - LOSS OF CONSCIOUSNESS [None]
  - MOBILITY DECREASED [None]
  - MUSCLE SPASMS [None]
  - NAUSEA [None]
  - PAIN IN EXTREMITY [None]
  - WEIGHT DECREASED [None]
